FAERS Safety Report 9908156 (Version 40)
Quarter: 2022Q3

REPORT INFORMATION
  Report Type: Other
  Country: CA (occurrence: None)
  Receive Date: 20140219
  Receipt Date: 20220721
  Transmission Date: 20221026
  Serious: Yes (Hospitalization, Other)
  Sender: FDA-Public Use
  Company Number: CA-ROCHE-1185940

PATIENT
  Age: 51 Year
  Sex: Female
  Weight: 70 kg

DRUGS (19)
  1. ACTEMRA [Suspect]
     Active Substance: TOCILIZUMAB
     Indication: Rheumatoid arthritis
     Route: 042
     Dates: start: 20110901, end: 201602
  2. ACTEMRA [Suspect]
     Active Substance: TOCILIZUMAB
     Route: 042
     Dates: start: 20120730
  3. ACTEMRA [Suspect]
     Active Substance: TOCILIZUMAB
     Route: 042
     Dates: start: 20150112
  4. ACTEMRA [Suspect]
     Active Substance: TOCILIZUMAB
     Route: 042
     Dates: start: 20150216, end: 20160229
  5. ACTEMRA [Suspect]
     Active Substance: TOCILIZUMAB
     Indication: Rheumatoid arthritis
     Dosage: DISCONTINUED
     Route: 058
     Dates: start: 20160425
  6. NAPROXEN [Suspect]
     Active Substance: NAPROXEN
     Indication: Product used for unknown indication
     Route: 065
  7. OMEPRAZOLE [Suspect]
     Active Substance: OMEPRAZOLE
     Indication: Product used for unknown indication
     Route: 065
  8. PANTOPRAZOLE [Suspect]
     Active Substance: PANTOPRAZOLE
     Indication: Product used for unknown indication
     Route: 065
  9. IMURAN [Concomitant]
     Active Substance: AZATHIOPRINE
  10. EMTEC 30 [Concomitant]
  11. TYLENOL [Concomitant]
     Active Substance: ACETAMINOPHEN
  12. LUTEIN [Concomitant]
     Active Substance: LUTEIN
  13. VITAMIN C [Concomitant]
     Active Substance: ASCORBIC ACID
  14. BETA CAROTENE [Concomitant]
     Active Substance: BETA CAROTENE
  15. LOSEC [Concomitant]
     Active Substance: OMEPRAZOLE
  16. FOLIC ACID [Concomitant]
     Active Substance: FOLIC ACID
  17. LUTEIN [Concomitant]
     Active Substance: LUTEIN
  18. NAPROSYN [Concomitant]
     Active Substance: NAPROXEN
  19. PANTOPRAZOLE [Concomitant]
     Active Substance: PANTOPRAZOLE

REACTIONS (36)
  - Large intestinal obstruction [Recovered/Resolved]
  - Conjunctivitis [Recovered/Resolved with Sequelae]
  - Hernia [Unknown]
  - Arthropathy [Unknown]
  - Herpes zoster [Not Recovered/Not Resolved]
  - Nasopharyngitis [Recovering/Resolving]
  - Blood pressure increased [Unknown]
  - Ingrowing nail [Not Recovered/Not Resolved]
  - Cough [Recovered/Resolved]
  - Heart rate decreased [Unknown]
  - Upper respiratory tract infection [Recovering/Resolving]
  - Influenza [Recovering/Resolving]
  - Arthropod bite [Recovering/Resolving]
  - Nasopharyngitis [Unknown]
  - Headache [Recovered/Resolved]
  - Infusion related reaction [Unknown]
  - Oropharyngeal pain [Recovered/Resolved]
  - Joint swelling [Unknown]
  - Pain [Recovered/Resolved]
  - Malaise [Not Recovered/Not Resolved]
  - Localised infection [Recovered/Resolved]
  - Fatigue [Unknown]
  - Flatulence [Unknown]
  - Dizziness [Unknown]
  - Influenza [Unknown]
  - Injection site reaction [Recovered/Resolved]
  - Stomatitis [Recovered/Resolved]
  - Impaired healing [Not Recovered/Not Resolved]
  - Tongue injury [Recovering/Resolving]
  - Bruxism [Unknown]
  - Mouth injury [Unknown]
  - Insomnia [Not Recovered/Not Resolved]
  - Device loosening [Unknown]
  - Drug ineffective [Unknown]
  - Medical device site joint infection [Unknown]
  - Malaise [Unknown]

NARRATIVE: CASE EVENT DATE: 20121218
